FAERS Safety Report 15780745 (Version 1)
Quarter: 2018Q4

REPORT INFORMATION
  Report Type: Spontaneous
  Country: US (occurrence: US)
  Receive Date: 20181226
  Receipt Date: 20181226
  Transmission Date: 20190205
  Serious: No
  Sender: FDA-Public Use
  Company Number: None

PATIENT

DRUGS (2)
  1. ZONISAMIDE 100 MG [Suspect]
     Active Substance: ZONISAMIDE
  2. ZIPRASIDONE. [Suspect]
     Active Substance: ZIPRASIDONE

REACTIONS (4)
  - Malaise [None]
  - Wrong product administered [None]
  - Product dispensing error [None]
  - Poisoning [None]
